FAERS Safety Report 24965741 (Version 1)
Quarter: 2025Q1

REPORT INFORMATION
  Report Type: Report from Study
  Country: US (occurrence: US)
  Receive Date: 20250213
  Receipt Date: 20250213
  Transmission Date: 20250408
  Serious: Yes (Death)
  Sender: PFIZER
  Company Number: US-PFIZER INC-PV202400073031

PATIENT
  Age: 54 Year
  Sex: Male

DRUGS (6)
  1. INLYTA [Suspect]
     Active Substance: AXITINIB
     Indication: Renal cancer
     Dosage: TAKE 1 TABLET WITH A FULL GLASS OF WATER
     Route: 048
     Dates: start: 20240330, end: 2024
  2. INLYTA [Suspect]
     Active Substance: AXITINIB
     Dosage: TAKE 3- 1 MG TABLET
     Route: 048
     Dates: start: 20240604
  3. INLYTA [Suspect]
     Active Substance: AXITINIB
     Dosage: TAKE 3 TABLETS (3MG) BY MOUTH TWICE DAILY
     Route: 048
     Dates: start: 20240604
  4. INLYTA [Suspect]
     Active Substance: AXITINIB
  5. CYMBALTA [Concomitant]
     Active Substance: DULOXETINE HYDROCHLORIDE
  6. LEVOTHYROXINE [Concomitant]
     Active Substance: LEVOTHYROXINE

REACTIONS (15)
  - Death [Fatal]
  - Blister [Unknown]
  - Stomatitis [Unknown]
  - Decreased appetite [Unknown]
  - Palmar-plantar erythrodysaesthesia syndrome [Unknown]
  - Hypoaesthesia [Unknown]
  - Paraesthesia [Unknown]
  - Erythema [Unknown]
  - Swelling [Unknown]
  - Blister [Unknown]
  - Weight decreased [Unknown]
  - Dry mouth [Unknown]
  - Skin disorder [Unknown]
  - Dry skin [Unknown]
  - Product dose omission issue [Unknown]

NARRATIVE: CASE EVENT DATE: 20240101
